FAERS Safety Report 9540145 (Version 1)
Quarter: 2013Q2

REPORT INFORMATION
  Report Type: Spontaneous
  Country: US (occurrence: None)
  Receive Date: 20130524
  Receipt Date: 20130524
  Transmission Date: 20140414
  Serious: Yes (Other)
  Sender: FDA-Public Use
  Company Number: PHEH2013US003691

PATIENT
  Age: 49 Year
  Sex: Female

DRUGS (5)
  1. GILENYA [Suspect]
     Indication: MULTIPLE SCLEROSIS
     Route: 048
     Dates: start: 20130211
  2. AMITRIPTYLINE (AMITRIPTYLINE) [Concomitant]
  3. DIOVAN (VALSARTAN) [Concomitant]
  4. ESTRADIOL (ESTRADIOL) [Concomitant]
  5. FLEXERIL (CYCLOBENZAPRINE HYDROCHLORIDE) [Concomitant]

REACTIONS (1)
  - Heart rate decreased [None]
